FAERS Safety Report 7775918-2 (Version None)
Quarter: 2011Q3

REPORT INFORMATION
  Report Type: 
  Country: None (occurrence: None)
  Receive Date: 20110923
  Receipt Date: 20110915
  Transmission Date: 20111222
  Serious: Yes (Hospitalization)
  Sender: FDA-Public Use
  Company Number: US-GENENTECH-324540

PATIENT
  Age: 34 Year
  Sex: Female
  Weight: 80.726 kg

DRUGS (1)
  1. XOLAIR [Suspect]
     Indication: ASTHMA
     Dosage: 150 MG, Q4W
     Route: 058

REACTIONS (4)
  - DYSPNOEA [None]
  - HOT FLUSH [None]
  - PRURITUS [None]
  - OEDEMA PERIPHERAL [None]
